FAERS Safety Report 9708529 (Version 1)
Quarter: 2013Q4

REPORT INFORMATION
  Report Type: Spontaneous
  Country: US (occurrence: None)
  Receive Date: 20131121
  Receipt Date: 20131121
  Transmission Date: 20140711
  Serious: Yes (Other)
  Sender: FDA-Public Use
  Company Number: SYM-2013-13031

PATIENT
  Sex: Female

DRUGS (1)
  1. XENAZINE [Suspect]
     Indication: DYSKINESIA
     Dosage: 12.5MG, 3 IN 1D, ORAL
     Route: 048
     Dates: start: 20100513, end: 20131112

REACTIONS (3)
  - Amnesia [None]
  - Fall [None]
  - Dizziness [None]
